FAERS Safety Report 8385215-2 (Version None)
Quarter: 2012Q2

REPORT INFORMATION
  Report Type: 
  Country: None (occurrence: None)
  Receive Date: 20120525
  Receipt Date: 20120514
  Transmission Date: 20120825
  Serious: Yes (Hospitalization)
  Sender: FDA-Public Use
  Company Number: US-BIOGENIDEC-2012BI013797

PATIENT
  Age: 61 Year
  Sex: Female

DRUGS (8)
  1. AVONEX [Suspect]
     Route: 030
     Dates: start: 20120501
  2. ACETAMINOPHEN [Concomitant]
  3. AVONEX [Suspect]
     Indication: MULTIPLE SCLEROSIS
     Route: 030
     Dates: start: 20100310
  4. NAC DIAGNOSTIC REAGENT [Concomitant]
     Dates: start: 20120308
  5. AVONEX [Suspect]
     Route: 030
     Dates: start: 20120101, end: 20120228
  6. PERCOCET [Concomitant]
     Dates: start: 20120301, end: 20120305
  7. AVONEX [Suspect]
     Route: 030
     Dates: start: 20120228, end: 20120430
  8. DILAUDID [Concomitant]
     Dates: start: 20120305

REACTIONS (3)
  - SPINAL OSTEOARTHRITIS [None]
  - LUMBAR RADICULOPATHY [None]
  - HEPATOTOXICITY [None]
